FAERS Safety Report 9954985 (Version 1)
Quarter: 2014Q1

REPORT INFORMATION
  Report Type: Report from Study
  Country: US (occurrence: US)
  Receive Date: 20140304
  Receipt Date: 20140304
  Transmission Date: 20141002
  Serious: No
  Sender: FDA-Public Use
  Company Number: US-ABBVIE-13P-163-1078017-00

PATIENT
  Age: 57 Year
  Sex: Male
  Weight: 99.88 kg

DRUGS (5)
  1. HUMIRA [Suspect]
     Indication: PSORIATIC ARTHROPATHY
     Dates: start: 2011, end: 201302
  2. COUMADIN [Concomitant]
     Indication: ANTICOAGULANT THERAPY
  3. METOPROLOL [Concomitant]
     Indication: HYPERTENSION
  4. TRAZADONE [Concomitant]
     Indication: DEPRESSION
  5. OXCARBAZEPINE [Concomitant]
     Indication: DEPRESSION

REACTIONS (4)
  - Onychoclasis [Not Recovered/Not Resolved]
  - Musculoskeletal pain [Not Recovered/Not Resolved]
  - Psoriasis [Not Recovered/Not Resolved]
  - Psoriasis [Not Recovered/Not Resolved]
